FAERS Safety Report 9066915 (Version 1)
Quarter: 2013Q1

REPORT INFORMATION
  Report Type: Spontaneous
  Country: US (occurrence: US)
  Receive Date: 20130214
  Receipt Date: 20130214
  Transmission Date: 20140127
  Serious: Yes (Hospitalization)
  Sender: FDA-Public Use
  Company Number: US-UCBSA-077881

PATIENT
  Age: 55 Year
  Sex: Male

DRUGS (2)
  1. CIMZIA [Suspect]
     Indication: CROHN^S DISEASE
     Dates: start: 200809, end: 2008
  2. CIMZIA [Suspect]
     Indication: CROHN^S DISEASE
     Dates: start: 200811

REACTIONS (2)
  - Intestinal perforation [Not Recovered/Not Resolved]
  - Abscess [Not Recovered/Not Resolved]
